FAERS Safety Report 4816512-2 (Version None)
Quarter: 2005Q4

REPORT INFORMATION
  Report Type: 
  Country: None (occurrence: None)
  Receive Date: 20051101
  Receipt Date: 20051024
  Transmission Date: 20060501
  Serious: Yes (Other)
  Sender: FDA-Public Use
  Company Number: PHRM2005FR02843

PATIENT
  Age: 76 Year
  Sex: Female

DRUGS (3)
  1. CORTICOSTEROID NOS [Concomitant]
  2. CHEMOTHERAPEUTICS,OTHER [Concomitant]
  3. ZOMETA [Suspect]
     Route: 042

REACTIONS (2)
  - OSTEONECROSIS [None]
  - TOOTH EXTRACTION [None]
